FAERS Safety Report 24294423 (Version 1)
Quarter: 2024Q3

REPORT INFORMATION
  Report Type: Spontaneous
  Country: US (occurrence: None)
  Receive Date: 20240905
  Receipt Date: 20240905
  Transmission Date: 20241016
  Serious: Yes (Hospitalization)
  Sender: Public
  Company Number: None

PATIENT
  Age: 61 Year
  Sex: Male
  Weight: 95.4 kg

DRUGS (13)
  1. PEMBROLIZUMAB [Suspect]
     Active Substance: PEMBROLIZUMAB
     Indication: Clear cell renal cell carcinoma
     Dosage: OTHER FREQUENCY : Q6W;?
     Route: 041
     Dates: start: 20240223
  2. DME Oxygen Therapy [Concomitant]
  3. Potassium replacement protocol [Concomitant]
  4. APIXABAN [Concomitant]
     Active Substance: APIXABAN
  5. DUONEB [Concomitant]
     Active Substance: ALBUTEROL SULFATE\IPRATROPIUM BROMIDE
  6. ALBUTEROL [Concomitant]
     Active Substance: ALBUTEROL
  7. GUAIFENESIN [Concomitant]
     Active Substance: GUAIFENESIN
  8. PANTOPRAZOLE [Concomitant]
     Active Substance: PANTOPRAZOLE
  9. PREDNISONE [Concomitant]
     Active Substance: PREDNISONE
  10. Magnesium replacement protocol [Concomitant]
  11. Phosphorus Replacement protocol [Concomitant]
  12. Potassium replacement protocol [Concomitant]
  13. ELIQUIS [Concomitant]
     Active Substance: APIXABAN

REACTIONS (2)
  - Pneumonia [None]
  - Pneumonitis [None]

NARRATIVE: CASE EVENT DATE: 20240825
